FAERS Safety Report 25580365 (Version 1)
Quarter: 2025Q3

REPORT INFORMATION
  Report Type: Other
  Country: US (occurrence: US)
  Receive Date: 20250718
  Receipt Date: 20250718
  Transmission Date: 20251021
  Serious: Yes (Death, Hospitalization, Other)
  Sender: HLS THERAPEUTICS
  Company Number: US-HLS-202500266

PATIENT
  Age: 32 Year
  Sex: Male

DRUGS (2)
  1. CLOZAPINE [Suspect]
     Active Substance: CLOZAPINE
     Indication: Product used for unknown indication
     Route: 065
  2. OLANZAPINE [Concomitant]
     Active Substance: OLANZAPINE
     Route: 065

REACTIONS (8)
  - Cachexia [Fatal]
  - Hypothermia [Fatal]
  - Multiple organ dysfunction syndrome [Fatal]
  - Obsessive-compulsive disorder [Fatal]
  - Death [Fatal]
  - Pneumonia [Fatal]
  - Septic shock [Fatal]
  - Loss of consciousness [Fatal]
